FAERS Safety Report 4779750-3 (Version None)
Quarter: 2005Q3

REPORT INFORMATION
  Report Type: 
  Country: None (occurrence: None)
  Receive Date: 20050914
  Receipt Date: 20050221
  Transmission Date: 20060218
  Serious: Yes (Life-Threatening, Hospitalization, Disabling)
  Sender: FDA-Public Use
  Company Number: 163-20785-04110637

PATIENT
  Age: 55 Year
  Sex: Male
  Weight: 79 kg

DRUGS (9)
  1. THALOMID [Suspect]
     Indication: MULTIPLE MYELOMA
     Dosage: SEE IMAGE
     Route: 048
     Dates: start: 20010905, end: 20020418
  2. THALOMID [Suspect]
     Indication: MULTIPLE MYELOMA
     Dosage: SEE IMAGE
     Route: 048
     Dates: start: 20020529, end: 20041101
  3. THALOMID [Suspect]
     Indication: MULTIPLE MYELOMA
     Dosage: SEE IMAGE
     Route: 048
     Dates: start: 20050201
  4. PREDNISONE [Suspect]
     Indication: MULTIPLE MYELOMA
     Dosage: 50 MG, QOD, ORAL
     Route: 048
     Dates: start: 20020529, end: 20041101
  5. DOXIL [Suspect]
     Indication: MULTIPLE MYELOMA
     Dosage: 50-70 MG, INTRAVENOUS
     Route: 042
     Dates: start: 20010905, end: 20020418
  6. VINCRISTINE [Suspect]
     Indication: MULTIPLE MYELOMA
     Dosage: 2 TO 0MG
     Dates: start: 20010905, end: 20020418
  7. DECADRON [Suspect]
     Indication: MULTIPLE MYELOMA
     Dosage: 40 MG, QD FOR 4 DAYS
     Dates: start: 20010905, end: 20020418
  8. LANTUS (INSULIN GLARGINE) (SOLUTION) [Concomitant]
  9. LEXAPRO (ESCITALOPRAM) (TABLETS) [Concomitant]

REACTIONS (25)
  - ATRIAL FIBRILLATION [None]
  - BACTERIAL INFECTION [None]
  - CANDIDA SEPSIS [None]
  - CARDIAC ARREST [None]
  - CHEST PAIN [None]
  - CYTOMEGALOVIRUS INFECTION [None]
  - DISEASE PROGRESSION [None]
  - ENTEROCOCCAL INFECTION [None]
  - HIP FRACTURE [None]
  - ILEUS [None]
  - ILEUS PARALYTIC [None]
  - METABOLIC ACIDOSIS [None]
  - MITRAL VALVE INCOMPETENCE [None]
  - MYOCARDIAL INFARCTION [None]
  - NECROTISING FASCIITIS [None]
  - OSTEOPOROSIS [None]
  - PATHOLOGICAL FRACTURE [None]
  - PNEUMONIA [None]
  - PSEUDOMONAL SEPSIS [None]
  - RENAL FAILURE ACUTE [None]
  - RESPIRATORY FAILURE [None]
  - RIGHT VENTRICULAR FAILURE [None]
  - SEPSIS [None]
  - TRICUSPID VALVE INCOMPETENCE [None]
  - TROPONIN INCREASED [None]
